FAERS Safety Report 6990465-3 (Version None)
Quarter: 2010Q3

REPORT INFORMATION
  Report Type: 
  Country: None (occurrence: None)
  Receive Date: 20100916
  Receipt Date: 20100701
  Transmission Date: 20110219
  Serious: Yes (Other)
  Sender: FDA-Public Use
  Company Number: US-PFIZER INC-2010072478

PATIENT
  Sex: Female
  Weight: 68.03 kg

DRUGS (6)
  1. LYRICA [Suspect]
     Indication: FIBROMYALGIA
     Dosage: 100 MG, 4X/DAY
     Route: 048
     Dates: end: 20100617
  2. LYRICA [Suspect]
     Dosage: UNK
  3. PERCOCET [Suspect]
     Indication: PAIN
     Dosage: UNK
     Route: 048
  4. VICODIN [Suspect]
     Indication: PAIN
     Dosage: UNK
     Route: 048
  5. VALIUM [Suspect]
     Indication: ARRHYTHMIA
     Dosage: 10 MG, 4X/DAY
     Route: 048
  6. VALIUM [Suspect]
     Indication: ANXIETY

REACTIONS (27)
  - ABDOMINAL DISCOMFORT [None]
  - AGITATION [None]
  - ANKLE FRACTURE [None]
  - ASTHENIA [None]
  - BELLIGERENCE [None]
  - CONFUSIONAL STATE [None]
  - DECREASED APPETITE [None]
  - DEPRESSION [None]
  - DIZZINESS [None]
  - DRUG INEFFECTIVE [None]
  - FALL [None]
  - FEELING DRUNK [None]
  - HYPOVENTILATION [None]
  - IMPAIRED DRIVING ABILITY [None]
  - INJURY [None]
  - MUSCLE SPASMS [None]
  - MUSCULAR WEAKNESS [None]
  - OEDEMA PERIPHERAL [None]
  - PAIN [None]
  - SOMNOLENCE [None]
  - SUICIDAL IDEATION [None]
  - TREMOR [None]
  - URINE OUTPUT DECREASED [None]
  - VISION BLURRED [None]
  - VISUAL ACUITY REDUCED [None]
  - VOMITING [None]
  - WEIGHT INCREASED [None]
